FAERS Safety Report 8874068 (Version 1)
Quarter: 2012Q4

REPORT INFORMATION
  Report Type: 
  Country: US (occurrence: US)
  Receive Date: 20121031
  Receipt Date: 20121031
  Transmission Date: 20130627
  Serious: Yes (Hospitalization, Other)
  Sender: FDA-Public Use
  Company Number: US-AMGEN-USASP2012069000

PATIENT
  Age: 41 Year
  Sex: Female

DRUGS (3)
  1. ENBREL [Suspect]
     Indication: RHEUMATOID ARTHRITIS
     Dosage: 50 mg, qwk
     Dates: start: 20120301, end: 20120831
  2. ENBREL [Suspect]
     Indication: SARCOIDOSIS
  3. METHOTREXATE [Concomitant]
     Dosage: 1 cc, qwk
     Dates: start: 2007

REACTIONS (6)
  - Ventriculo-vascular shunt [Recovered/Resolved]
  - Pulmonary embolism [Recovered/Resolved]
  - Abdominal hernia [Recovered/Resolved]
  - Pyrexia [Recovered/Resolved]
  - Osteomyelitis [Recovered/Resolved]
  - Sepsis [Recovered/Resolved]
